FAERS Safety Report 8389788-5 (Version None)
Quarter: 2012Q2

REPORT INFORMATION
  Report Type: 
  Country: None (occurrence: None)
  Receive Date: 20120529
  Receipt Date: 20120523
  Transmission Date: 20120825
  Serious: Yes (Other)
  Sender: FDA-Public Use
  Company Number: PHEH2012US010842

PATIENT
  Age: 78 Year
  Sex: Female
  Weight: 49.887 kg

DRUGS (1)
  1. RECLAST [Suspect]
     Dosage: 5 MG/100 ML 1 DOSE PER YEAR
     Route: 042

REACTIONS (1)
  - HIP FRACTURE [None]
